FAERS Safety Report 15393886 (Version 1)
Quarter: 2018Q3

REPORT INFORMATION
  Report Type: Spontaneous
  Country: US (occurrence: US)
  Receive Date: 20180917
  Receipt Date: 20180917
  Transmission Date: 20181010
  Serious: No
  Sender: FDA-Public Use
  Company Number: US-JNJFOC-20180837530

PATIENT
  Sex: Female

DRUGS (2)
  1. ZYRTEC ALLERGY [Suspect]
     Active Substance: CETIRIZINE HYDROCHLORIDE
     Route: 048
  2. ZYRTEC ALLERGY [Suspect]
     Active Substance: CETIRIZINE HYDROCHLORIDE
     Indication: RASH PRURITIC
     Route: 048
     Dates: start: 20180813

REACTIONS (2)
  - Product use in unapproved indication [Unknown]
  - Somnolence [Unknown]

NARRATIVE: CASE EVENT DATE: 20180813
